FAERS Safety Report 5824289-7 (Version None)
Quarter: 2008Q3

REPORT INFORMATION
  Report Type: 
  Country: None (occurrence: None)
  Receive Date: 20080728
  Receipt Date: 20080717
  Transmission Date: 20090109
  Serious: Yes (Hospitalization)
  Sender: FDA-Public Use
  Company Number: FR-ROCHE-576460

PATIENT
  Sex: Male

DRUGS (1)
  1. LARIAM [Suspect]
     Indication: MALARIA
     Dosage: DOSE: 15 MG/KG THEN 20 MG/KG EIGHT HOURS LATER
     Route: 048
     Dates: start: 20080616, end: 20080616

REACTIONS (1)
  - CYTOLYTIC HEPATITIS [None]
